FAERS Safety Report 6845391-7 (Version None)
Quarter: 2010Q3

REPORT INFORMATION
  Report Type: 
  Country: None (occurrence: None)
  Receive Date: 20100715
  Receipt Date: 20070816
  Transmission Date: 20110219
  Serious: No
  Sender: FDA-Public Use
  Company Number: US-PFIZER INC-2007070022

PATIENT
  Sex: Female
  Weight: 115.7 kg

DRUGS (11)
  1. CHANTIX [Suspect]
     Indication: SMOKING CESSATION THERAPY
     Dates: start: 20070814
  2. PROZAC [Concomitant]
  3. VALIUM [Concomitant]
  4. LAMICTAL [Concomitant]
  5. SEROQUEL [Concomitant]
  6. HYDROCHLOROTHIAZIDE [Concomitant]
  7. TRICOR [Concomitant]
  8. HYDROCODONE [Concomitant]
  9. IBUPROFEN [Concomitant]
  10. FLEXERIL [Concomitant]
  11. ATARAX [Concomitant]

REACTIONS (3)
  - FATIGUE [None]
  - POLLAKIURIA [None]
  - SOMNOLENCE [None]
